FAERS Safety Report 17443172 (Version 1)
Quarter: 2020Q1

REPORT INFORMATION
  Report Type: Spontaneous
  Country: BR (occurrence: BR)
  Receive Date: 20200221
  Receipt Date: 20200221
  Transmission Date: 20200409
  Serious: Yes (Other)
  Sender: FDA-Public Use
  Company Number: BR-EMD SERONO-9146580

PATIENT
  Age: 53 Year
  Sex: Female

DRUGS (2)
  1. GLIFAGE [Suspect]
     Active Substance: METFORMIN HYDROCHLORIDE
     Dosage: NEW FORMAT
     Route: 048
     Dates: start: 201912
  2. GLIFAGE [Suspect]
     Active Substance: METFORMIN HYDROCHLORIDE
     Indication: PRODUCT USED FOR UNKNOWN INDICATION
     Dosage: OLD FORMAT
     Route: 048

REACTIONS (5)
  - Choking [Unknown]
  - Product shape issue [Unknown]
  - Asphyxia [Unknown]
  - Foreign body in respiratory tract [Unknown]
  - Product use complaint [Unknown]

NARRATIVE: CASE EVENT DATE: 201912
